FAERS Safety Report 6101427-2 (Version None)
Quarter: 2009Q1

REPORT INFORMATION
  Report Type: 
  Country: None (occurrence: None)
  Receive Date: 20090303
  Receipt Date: 20090303
  Transmission Date: 20090719
  Serious: No
  Sender: FDA-Public Use
  Company Number: None

PATIENT
  Age: 62 Year
  Sex: Female
  Weight: 113.3993 kg

DRUGS (1)
  1. DORZOLAMIDE HCL [Suspect]
     Indication: INTRAOCULAR PRESSURE INCREASED
     Dosage: 1 DROP TO LEFT EYE 2 X DAILY OPHTHALMIC
     Route: 047
     Dates: start: 20090224, end: 20090228

REACTIONS (4)
  - CONTRAINDICATION TO MEDICAL TREATMENT [None]
  - MEDICATION ERROR [None]
  - OCULAR HYPERAEMIA [None]
  - PRURITUS [None]
